FAERS Safety Report 5374190-0 (Version None)
Quarter: 2007Q2

REPORT INFORMATION
  Report Type: 
  Country: None (occurrence: None)
  Receive Date: 20070627
  Receipt Date: 20060929
  Transmission Date: 20071010
  Serious: Yes (Death)
  Sender: FDA-Public Use
  Company Number: 465704

PATIENT
  Age: 59 Year
  Sex: Female

DRUGS (1)
  1. XELODA [Suspect]
     Indication: PANCREATIC CARCINOMA
     Dosage: 1 DOSE FORM 2 PER DAY ORAL
     Route: 048
     Dates: start: 20060707

REACTIONS (1)
  - PANCREATIC CARCINOMA [None]
